FAERS Safety Report 7204090-2 (Version None)
Quarter: 2010Q4

REPORT INFORMATION
  Report Type: 
  Country: None (occurrence: None)
  Receive Date: 20101230
  Receipt Date: 20101228
  Transmission Date: 20110411
  Serious: Yes (Hospitalization)
  Sender: FDA-Public Use
  Company Number: FR-ROCHE-617400

PATIENT
  Sex: Female

DRUGS (6)
  1. AVASTIN [Suspect]
     Route: 048
     Dates: start: 20080415, end: 20080505
  2. AVASTIN [Suspect]
     Route: 048
     Dates: start: 20080520, end: 20080611
  3. AVASTIN [Suspect]
     Route: 048
  4. TYVERB [Suspect]
     Route: 048
     Dates: start: 20080415, end: 20080505
  5. TYVERB [Suspect]
     Route: 048
     Dates: start: 20080520, end: 20080611
  6. TYVERB [Suspect]
     Route: 048

REACTIONS (2)
  - DIARRHOEA [None]
  - GASTROINTESTINAL MUCOSAL DISORDER [None]
